FAERS Safety Report 15007159 (Version 1)
Quarter: 2018Q2

REPORT INFORMATION
  Report Type: Spontaneous
  Country: GB (occurrence: GB)
  Receive Date: 20180613
  Receipt Date: 20180613
  Transmission Date: 20180711
  Serious: Yes (Other)
  Sender: FDA-Public Use
  Company Number: GB-ALLERGAN-1830086US

PATIENT
  Age: 60 Year
  Sex: Male

DRUGS (4)
  1. CYCLOPHOSPHAMIDE. [Concomitant]
     Active Substance: CYCLOPHOSPHAMIDE
     Indication: SCLEROMALACIA
     Route: 065
  2. METHOTREXATE. [Concomitant]
     Active Substance: METHOTREXATE
     Indication: SCLEROMALACIA
     Route: 065
  3. RITUXIMAB. [Concomitant]
     Active Substance: RITUXIMAB
     Indication: SCLEROMALACIA
     Route: 065
  4. PREDNISOLONE UNK [Suspect]
     Active Substance: PREDNISOLONE
     Indication: SCLEROMALACIA
     Route: 065

REACTIONS (2)
  - Ocular hypertension [Recovered/Resolved]
  - Off label use [Unknown]
